FAERS Safety Report 9755568 (Version 1)
Quarter: 2013Q4

REPORT INFORMATION
  Report Type: Spontaneous
  Country: US (occurrence: US)
  Receive Date: 20131213
  Receipt Date: 20131213
  Transmission Date: 20140711
  Serious: No
  Sender: FDA-Public Use
  Company Number: US-GLAXOSMITHKLINE-A1020328A

PATIENT
  Age: 47 Year
  Sex: 0

DRUGS (12)
  1. NICODERM CQ CLEAR 21MG [Suspect]
     Indication: EX-TOBACCO USER
     Route: 062
     Dates: end: 20130416
  2. PRISTIQ [Concomitant]
  3. VALIUM [Concomitant]
  4. MORPHINE SULFATE [Concomitant]
  5. FOLIC ACID [Concomitant]
  6. LEVOTHYROXINE [Concomitant]
  7. OXYGEN [Concomitant]
  8. IPRATROPIUM BROMIDE [Concomitant]
  9. ALBUTEROL SULFATE [Concomitant]
  10. LORATAB [Concomitant]
  11. ZOFRAN [Concomitant]
  12. CHEMOTHERAPY [Concomitant]
     Route: 048

REACTIONS (3)
  - Musculoskeletal chest pain [Not Recovered/Not Resolved]
  - Chest pain [Not Recovered/Not Resolved]
  - Drug interaction [Not Recovered/Not Resolved]
